FAERS Safety Report 15740286 (Version 1)
Quarter: 2018Q4

REPORT INFORMATION
  Report Type: Spontaneous
  Country: US (occurrence: US)
  Receive Date: 20181204
  Receipt Date: 20181204
  Transmission Date: 20190205
  Serious: Yes (Hospitalization, Other)
  Sender: FDA-Public Use
  Company Number: None

PATIENT
  Age: 84 Year
  Sex: Male

DRUGS (10)
  1. PACEMAKER [Concomitant]
  2. GLUCOSAMINE/CHONDROITIN [Concomitant]
  3. XARELTO [Suspect]
     Active Substance: RIVAROXABAN
  4. MULTI VITAMIN [Concomitant]
     Active Substance: VITAMINS
  5. MAGNESIUM [Concomitant]
     Active Substance: MAGNESIUM
  6. VITAMIN D3 [Concomitant]
     Active Substance: CHOLECALCIFEROL
  7. VALSARTAN 160 MG PRODECT RECALLED [Suspect]
     Active Substance: VALSARTAN
     Indication: BLOOD PRESSURE MEASUREMENT
     Dosage: ?          QUANTITY:90 TABLET(S);?
     Route: 048
     Dates: end: 20181123
  8. CALCIUM [Concomitant]
     Active Substance: CALCIUM
  9. LOSARTAN. [Concomitant]
     Active Substance: LOSARTAN
  10. SOLATOL [Concomitant]
     Active Substance: SOTALOL

REACTIONS (3)
  - Product quality issue [None]
  - Large intestinal haemorrhage [None]
  - Product impurity [None]

NARRATIVE: CASE EVENT DATE: 20181123
